FAERS Safety Report 8014375 (Version 5)
Quarter: 2013Q3

REPORT INFORMATION
  Report Type: Report from Study
  Country: JP (occurrence: JP)
  Receive Date: 20110629
  Receipt Date: 20130730
  Transmission Date: 20140515
  Serious: Yes (Other)
  Sender: FDA-Public Use
  Company Number: JP-ABBOTT-11P-087-0734235-00

PATIENT
  Age: 63 Year
  Sex: Female
  Weight: 67.6 kg

DRUGS (12)
  1. KLARICID [Suspect]
     Indication: ATYPICAL MYCOBACTERIAL INFECTION
     Route: 048
     Dates: start: 20110303, end: 20110524
  2. KLARICID [Suspect]
     Dates: start: 20110630, end: 20110714
  3. RIFAMPICIN [Suspect]
     Indication: ATYPICAL MYCOBACTERIAL INFECTION
     Route: 048
     Dates: start: 20110303, end: 20110524
  4. RIFAMPICIN [Suspect]
     Dates: start: 20110607, end: 20110621
  5. ETHAMBUTOL HYDROCHLORIDE [Suspect]
     Indication: ATYPICAL MYCOBACTERIAL INFECTION
     Route: 048
     Dates: start: 20110303, end: 20110524
  6. ETHAMBUTOL HYDROCHLORIDE [Suspect]
     Dates: start: 20110630, end: 20110714
  7. LANSOPRAZOLE [Concomitant]
     Indication: GASTROOESOPHAGEAL REFLUX DISEASE
     Route: 048
     Dates: start: 20110303
  8. GASMOTIN [Concomitant]
     Indication: DYSPEPSIA
     Route: 048
     Dates: start: 20110303
  9. MAGMITT [Concomitant]
     Indication: CONSTIPATION
     Route: 048
     Dates: start: 20110303
  10. BONALON [Concomitant]
     Indication: OSTEOPOROSIS
     Route: 048
     Dates: start: 20110303
  11. GANATON [Concomitant]
     Indication: DYSPEPSIA
     Route: 048
     Dates: start: 20110303
  12. KETOPROFEN [Concomitant]
     Indication: PRODUCT USED FOR UNKNOWN INDICATION
     Route: 062

REACTIONS (5)
  - Febrile neutropenia [Unknown]
  - Drug hypersensitivity [Recovered/Resolved]
  - Neutrophil count decreased [Recovered/Resolved]
  - Neutrophil count decreased [Recovered/Resolved]
  - Platelet count decreased [Recovered/Resolved]
